FAERS Safety Report 9626402 (Version 1)
Quarter: 2013Q4

REPORT INFORMATION
  Report Type: Spontaneous
  Country: US (occurrence: US)
  Receive Date: 20131016
  Receipt Date: 20131016
  Transmission Date: 20140711
  Serious: No
  Sender: FDA-Public Use
  Company Number: US-BAYER-2013-124696

PATIENT
  Age: 58 Year
  Sex: Female
  Weight: 52 kg

DRUGS (3)
  1. ALEVE LIQUID GELS [Suspect]
     Indication: HEADACHE
     Dosage: 1 DF, PRN
     Route: 048
     Dates: start: 20131011, end: 20131011
  2. ATENOLOL [Concomitant]
  3. VITAMIN D [Concomitant]

REACTIONS (1)
  - Oral discomfort [Recovered/Resolved]
